FAERS Safety Report 18298227 (Version 1)
Quarter: 2020Q3

REPORT INFORMATION
  Report Type: Report from Study
  Country: MX (occurrence: MX)
  Receive Date: 20200922
  Receipt Date: 20200922
  Transmission Date: 20201103
  Serious: Yes (Other)
  Sender: FDA-Public Use
  Company Number: MX-DSJP-DSU-2020-127003

PATIENT
  Age: 72 Year
  Sex: Female
  Weight: 79 kg

DRUGS (2)
  1. OLMESARTAN?HCTZ [Suspect]
     Active Substance: HYDROCHLOROTHIAZIDE\OLMESARTAN MEDOXOMIL
     Indication: BLOOD PRESSURE ABNORMAL
     Dosage: 1 DF, 40/25 MG 1 TAB DAILY MORNING
     Route: 048
     Dates: start: 2008, end: 2018
  2. OLMESARTAN?HCTZ [Suspect]
     Active Substance: HYDROCHLOROTHIAZIDE\OLMESARTAN MEDOXOMIL
     Dosage: 40/25 MG 0.5 TAB DAILY MORNING
     Route: 048
     Dates: start: 2018

REACTIONS (6)
  - Product prescribing issue [Unknown]
  - Hypothyroidism [Unknown]
  - Blood triglycerides increased [Unknown]
  - Incorrect dose administered [Unknown]
  - Blood cholesterol increased [Unknown]
  - Wrong technique in product usage process [Unknown]

NARRATIVE: CASE EVENT DATE: 2017
